FAERS Safety Report 19389363 (Version 1)
Quarter: 2021Q2

REPORT INFORMATION
  Report Type: Other
  Country: EG (occurrence: EG)
  Receive Date: 20210608
  Receipt Date: 20210608
  Transmission Date: 20210717
  Serious: Yes (Other)
  Sender: FDA-Public Use
  Company Number: EG-ROCHE-2842889

PATIENT

DRUGS (1)
  1. TOCILIZUMAB. [Suspect]
     Active Substance: TOCILIZUMAB
     Indication: STILL^S DISEASE
     Dosage: 8?12 MG/KG SLOW INFUSION EVERY 2 WEEKS
     Route: 042

REACTIONS (1)
  - Haemophagocytic lymphohistiocytosis [Unknown]
